FAERS Safety Report 12270288 (Version 1)
Quarter: 2016Q2

REPORT INFORMATION
  Report Type: Spontaneous
  Country: FR (occurrence: FR)
  Receive Date: 20160415
  Receipt Date: 20160415
  Transmission Date: 20160815
  Serious: Yes (Life-Threatening)
  Sender: FDA-Public Use
  Company Number: FR-GE HEALTHCARE MEDICAL DIAGNOSTICS-VISP-PR-1604S-0188

PATIENT
  Age: 73 Year
  Sex: Female

DRUGS (12)
  1. IMOVANE [Concomitant]
     Active Substance: ZOPICLONE
  2. VISIPAQUE [Suspect]
     Active Substance: IODIXANOL
     Indication: URINARY TRACT DISORDER
     Route: 042
     Dates: start: 20151216, end: 20151216
  3. DESLORATADINE. [Concomitant]
     Active Substance: DESLORATADINE
  4. ESIDREX [Concomitant]
     Active Substance: HYDROCHLOROTHIAZIDE
  5. EFFERALGAN [Concomitant]
     Active Substance: ACETAMINOPHEN
  6. VISIPAQUE [Suspect]
     Active Substance: IODIXANOL
     Indication: ABDOMINAL PAIN
  7. VISIPAQUE [Suspect]
     Active Substance: IODIXANOL
     Indication: DIAGNOSTIC PROCEDURE
  8. LEVOTHYROX [Concomitant]
     Active Substance: LEVOTHYROXINE
  9. LANZOR [Concomitant]
     Active Substance: LANSOPRAZOLE
  10. ACARBOSE. [Concomitant]
     Active Substance: ACARBOSE
  11. ATACAND [Concomitant]
     Active Substance: CANDESARTAN CILEXETIL
  12. TEMGESIC [Concomitant]
     Active Substance: BUPRENORPHINE HYDROCHLORIDE

REACTIONS (4)
  - Rash pruritic [Recovered/Resolved]
  - Anuria [Recovered/Resolved]
  - Eosinophilia [Recovered/Resolved]
  - Acute kidney injury [Not Recovered/Not Resolved]

NARRATIVE: CASE EVENT DATE: 20151218
